FAERS Safety Report 14770929 (Version 1)
Quarter: 2018Q2

REPORT INFORMATION
  Report Type: Spontaneous
  Country: US (occurrence: US)
  Receive Date: 20180417
  Receipt Date: 20180417
  Transmission Date: 20180711
  Serious: No
  Sender: FDA-Public Use
  Company Number: US-ALLERGAN-1712410US

PATIENT
  Age: 5 Decade
  Sex: Female

DRUGS (1)
  1. LATISSE [Suspect]
     Active Substance: BIMATOPROST
     Indication: GROWTH OF EYELASHES
     Dosage: 1 GTT, QHS
     Route: 061
     Dates: start: 201702

REACTIONS (6)
  - Erythema [Recovered/Resolved]
  - Scab [Recovered/Resolved]
  - Erythema of eyelid [Recovered/Resolved]
  - Eyelid oedema [Recovered/Resolved]
  - Eyelid skin dryness [Recovered/Resolved]
  - Swollen tear duct [Recovered/Resolved]
